FAERS Safety Report 11415875 (Version 1)
Quarter: 2015Q3

REPORT INFORMATION
  Report Type: Spontaneous
  Country: US (occurrence: US)
  Receive Date: 20150825
  Receipt Date: 20150825
  Transmission Date: 20151125
  Serious: Yes (Hospitalization)
  Sender: FDA-Public Use
  Company Number: US-UNITED THERAPEUTICS-UNT-2015-008470

PATIENT
  Age: 52 Year
  Sex: Male
  Weight: 83.9 kg

DRUGS (3)
  1. REMODULIN [Suspect]
     Active Substance: TREPROSTINIL
     Indication: PULMONARY HYPERTENSION
     Dosage: 0.070 ?G/KG, CONTINUING
     Route: 041
     Dates: start: 20130718, end: 201507
  2. REMODULIN [Suspect]
     Active Substance: TREPROSTINIL
     Dosage: 0.01625 ?G/KG, CONTINUING
     Route: 041
     Dates: start: 20130930, end: 201507
  3. ADCIRCA [Concomitant]
     Active Substance: TADALAFIL
     Indication: PRODUCT USED FOR UNKNOWN INDICATION

REACTIONS (1)
  - Lung transplant [Recovered/Resolved]

NARRATIVE: CASE EVENT DATE: 201507
